FAERS Safety Report 7217621-3 (Version None)
Quarter: 2011Q1

REPORT INFORMATION
  Report Type: 
  Country: None (occurrence: None)
  Receive Date: 20110110
  Receipt Date: 20110105
  Transmission Date: 20110831
  Serious: Yes (Other)
  Sender: FDA-Public Use
  Company Number: BR-ROCHE-748546

PATIENT
  Sex: Male
  Weight: 77 kg

DRUGS (8)
  1. RIVOTRIL [Suspect]
     Dosage: AT NIGHT
     Route: 065
     Dates: start: 20101118
  2. MONOCORDIL [Concomitant]
     Dosage: 1 TABLET AT 8:00 AND 1 TABLET AT 16:00
     Dates: start: 20090630
  3. OMEPRAZOLE [Concomitant]
     Dosage: 1 TABLET/FASTING, INDICATION: STOMACH
     Dates: start: 20100630
  4. RIVOTRIL [Suspect]
     Dosage: 1 TABLET OF 2 MG AT NIGHT
     Route: 065
     Dates: start: 20091229, end: 20101117
  5. AAS [Concomitant]
     Dosage: 2 TABLETS AFTER LUNCH
     Dates: start: 20080101
  6. ATENOLOL [Concomitant]
     Indication: HYPERTENSION
     Dosage: 1 TABLET AT 9:00
     Dates: start: 20100822
  7. ENALAPRIL [Concomitant]
     Indication: HYPERTENSION
     Dosage: 1 TABLET IN MORNING AND 1 TABLET AT 21:00
     Dates: start: 20100630
  8. SIMVASTATIN [Concomitant]
     Dosage: 1 TABLET AT 21:00
     Dates: start: 20100630

REACTIONS (11)
  - IRRITABILITY [None]
  - INSOMNIA [None]
  - HYPOAESTHESIA [None]
  - HYPOAESTHESIA FACIAL [None]
  - DRUG DEPENDENCE [None]
  - MALAISE [None]
  - CARDIAC VALVE DISEASE [None]
  - PERICARDIAL DISEASE [None]
  - FATIGUE [None]
  - DRUG INEFFECTIVE [None]
  - DYSPNOEA [None]
